FAERS Safety Report 6523621-9 (Version None)
Quarter: 2009Q4

REPORT INFORMATION
  Report Type: 
  Country: None (occurrence: None)
  Receive Date: 20091231
  Receipt Date: 20091218
  Transmission Date: 20100525
  Serious: Yes (Other)
  Sender: FDA-Public Use
  Company Number: PHHY2009DK37503

PATIENT
  Sex: Male

DRUGS (1)
  1. ZOLEDRONATE T29581+SOLINJ+BM [Suspect]
     Dosage: 4 MG, QMO
     Route: 042
     Dates: start: 20071203

REACTIONS (2)
  - METASTASES TO LIVER [None]
  - PANCREATIC CARCINOMA [None]
